FAERS Safety Report 7064921-6 (Version None)
Quarter: 2010Q4

REPORT INFORMATION
  Report Type: 
  Country: None (occurrence: None)
  Receive Date: 20101027
  Receipt Date: 20101020
  Transmission Date: 20110411
  Serious: Yes (Other)
  Sender: FDA-Public Use
  Company Number: US-PFIZER INC-2005091728

PATIENT
  Sex: Female
  Weight: 61 kg

DRUGS (7)
  1. CELEBREX [Suspect]
     Dosage: 200 MG, 1X/DAY
     Route: 048
     Dates: start: 20020101
  2. LIPITOR [Suspect]
     Dosage: UNK
     Route: 048
     Dates: start: 20050101, end: 20050101
  3. LIBRAX [Concomitant]
     Dosage: UNK
     Route: 048
  4. ACETYLSALICYLIC ACID [Concomitant]
     Dosage: UNK
     Route: 048
  5. ZOLOFT [Concomitant]
     Dosage: UNK
     Route: 048
     Dates: start: 20050101
  6. CALCIUM [Concomitant]
     Dosage: UNK
     Route: 048
  7. VITAMIN D [Concomitant]
     Dosage: UNK
     Route: 048

REACTIONS (11)
  - ARTHRITIS [None]
  - BLOOD CHOLESTEROL INCREASED [None]
  - CARPAL TUNNEL SYNDROME [None]
  - CYST [None]
  - GASTROOESOPHAGEAL REFLUX DISEASE [None]
  - HIGH DENSITY LIPOPROTEIN DECREASED [None]
  - LIMB INJURY [None]
  - LOW DENSITY LIPOPROTEIN INCREASED [None]
  - NERVE COMPRESSION [None]
  - OSTEOPENIA [None]
  - PAIN [None]
